FAERS Safety Report 17221632 (Version 1)
Quarter: 2020Q1

REPORT INFORMATION
  Report Type: Spontaneous
  Country: FR (occurrence: FR)
  Receive Date: 20200101
  Receipt Date: 20200101
  Transmission Date: 20200409
  Serious: Yes (Hospitalization)
  Sender: FDA-Public Use
  Company Number: FR-ROCHE-2502751

PATIENT
  Age: 78 Year
  Sex: Female
  Weight: 80 kg

DRUGS (3)
  1. PERJETA [Suspect]
     Active Substance: PERTUZUMAB
     Indication: BREAST CANCER RECURRENT
     Dosage: RECENT DOSE ON 05/NOV/2019
     Route: 041
     Dates: start: 20191014
  2. PACLITAXEL ACCORD [Suspect]
     Active Substance: PACLITAXEL
     Indication: BREAST CANCER RECURRENT
     Dosage: RECENT DOSE ON 12/NOV/2019
     Route: 041
     Dates: start: 20191014
  3. ONTRUZANT [Suspect]
     Active Substance: TRASTUZUMAB-DTTB
     Indication: BREAST CANCER RECURRENT
     Dosage: RECENT DOSE ON 05/NOV/2019
     Route: 041
     Dates: start: 20191014

REACTIONS (1)
  - Skin exfoliation [Recovering/Resolving]

NARRATIVE: CASE EVENT DATE: 20191118
